FAERS Safety Report 25182215 (Version 1)
Quarter: 2025Q2

REPORT INFORMATION
  Report Type: Spontaneous
  Country: US (occurrence: US)
  Receive Date: 20250410
  Receipt Date: 20250410
  Transmission Date: 20250717
  Serious: No
  Sender: KINIKSA PHARMACEUTICALS
  Company Number: US-Kiniksa Pharmaceuticals Ltd.-2024KPU000294

PATIENT
  Age: 33 Year
  Sex: Male

DRUGS (2)
  1. ARCALYST [Suspect]
     Active Substance: RILONACEPT
     Indication: Pericarditis
     Route: 058
     Dates: start: 20240203
  2. ARCALYST [Suspect]
     Active Substance: RILONACEPT
     Route: 058
     Dates: start: 20240210

REACTIONS (4)
  - Lymphadenopathy [Unknown]
  - Lymph node pain [Unknown]
  - Injection site erythema [Unknown]
  - Injection site swelling [Unknown]

NARRATIVE: CASE EVENT DATE: 20240224
